FAERS Safety Report 9466079 (Version 1)
Quarter: 2013Q3

REPORT INFORMATION
  Report Type: Spontaneous
  Country: JP (occurrence: JP)
  Receive Date: 20130820
  Receipt Date: 20130820
  Transmission Date: 20140515
  Serious: Yes (Other)
  Sender: FDA-Public Use
  Company Number: JP-ELI_LILLY_AND_COMPANY-JP201308003492

PATIENT
  Sex: Male

DRUGS (3)
  1. ZYPREXA [Suspect]
     Indication: DYSTHYMIC DISORDER
     Dosage: 2.5 MG, PRN
     Route: 048
     Dates: start: 20110908, end: 20111023
  2. ZYPREXA [Suspect]
     Dosage: 1.25 MG, PRN
     Route: 048
     Dates: start: 20111024, end: 2013
  3. WYPAX [Concomitant]
     Indication: DYSTHYMIC DISORDER
     Dosage: UNK
     Route: 048
     Dates: end: 2013

REACTIONS (12)
  - Convulsion [Unknown]
  - Melaena [Recovered/Resolved]
  - Haematochezia [Recovered/Resolved]
  - Breath odour [Recovering/Resolving]
  - Nasopharyngitis [Recovered/Resolved]
  - Wrong technique in drug usage process [Recovered/Resolved]
  - Inappropriate schedule of drug administration [Recovered/Resolved]
  - Chest pain [Unknown]
  - Labile blood pressure [Unknown]
  - Dermatitis [Recovered/Resolved]
  - Dizziness [Unknown]
  - Dizziness postural [Unknown]
